FAERS Safety Report 4598824-3 (Version None)
Quarter: 2005Q1

REPORT INFORMATION
  Report Type: 
  Country: None (occurrence: None)
  Receive Date: 20050301
  Receipt Date: 20050207
  Transmission Date: 20050727
  Serious: Yes (Other)
  Sender: FDA-Public Use
  Company Number: 2004241347US

PATIENT
  Age: 49 Year
  Sex: Female
  Weight: 68.93 kg

DRUGS (6)
  1. BEXTRA [Suspect]
     Indication: BACK PAIN
     Dosage: 40 MG (20 MG, 2 IN 1 D), ORAL
     Route: 048
     Dates: start: 20020101
  2. VERAPAMIL HYDROCHLORIDE [Concomitant]
  3. ESOMEPRAZOLE (ESOMEPRAZOLE) [Concomitant]
  4. AMITRIPTYLINE (AMITRIPTYLINE) [Concomitant]
  5. GABAPENTIN [Concomitant]
  6. TIZANIDINE (TIZANIDINE) [Concomitant]

REACTIONS (2)
  - OSTEOPOROSIS [None]
  - SPINAL FUSION SURGERY [None]
